FAERS Safety Report 8815935 (Version 1)
Quarter: 2012Q4

REPORT INFORMATION
  Report Type: 
  Country: US (occurrence: US)
  Receive Date: 20120928
  Receipt Date: 20120928
  Transmission Date: 20130627
  Serious: Yes (Death)
  Sender: FDA-Public Use
  Company Number: US-ROCHE-1129843

PATIENT
  Sex: Female

DRUGS (10)
  1. HERCEPTIN [Suspect]
     Indication: BREAST CANCER
     Dosage: IVPB
     Route: 065
  2. ACTIVASE [Suspect]
     Indication: PRODUCT USED FOR UNKNOWN INDICATION
     Route: 065
  3. DECADRON [Concomitant]
     Dosage: IVPB
     Route: 065
  4. PEPCID [Concomitant]
     Dosage: IVP
     Route: 065
  5. BENADRYL [Concomitant]
     Dosage: IVP
     Route: 065
  6. ZOFRAN [Concomitant]
     Dosage: IVPB
     Route: 065
  7. TAXOTERE [Concomitant]
     Dosage: IVPB
     Route: 065
  8. HYDROCORTISONE [Concomitant]
     Dosage: IVP
     Route: 065
  9. EPOGEN [Concomitant]
     Dosage: 40000
     Route: 058
  10. TYLENOL [Concomitant]
     Route: 048

REACTIONS (1)
  - Death [Fatal]
